FAERS Safety Report 4918074-8 (Version None)
Quarter: 2006Q1

REPORT INFORMATION
  Report Type: 
  Country: None (occurrence: None)
  Receive Date: 20060221
  Receipt Date: 20051207
  Transmission Date: 20060701
  Serious: Yes (Hospitalization, Other)
  Sender: FDA-Public Use
  Company Number: US-MERCK-0512USA00928

PATIENT
  Age: 66 Year
  Sex: Female
  Weight: 82 kg

DRUGS (8)
  1. VIOXX [Suspect]
     Indication: ARTHRITIS
     Route: 048
     Dates: start: 20001101, end: 20040901
  2. VIOXX [Suspect]
     Route: 048
     Dates: start: 20001101, end: 20040901
  3. LIPITOR [Concomitant]
     Route: 065
  4. LOTREL [Concomitant]
     Route: 065
  5. LASIX [Concomitant]
     Route: 065
  6. TOPROL-XL [Concomitant]
     Route: 065
  7. GLUCOPHAGE [Concomitant]
     Route: 065
  8. ASPIRIN [Concomitant]
     Route: 065

REACTIONS (10)
  - CARDIAC DISORDER [None]
  - CEREBROVASCULAR ACCIDENT [None]
  - CORONARY ARTERY DISEASE [None]
  - DEPRESSION [None]
  - LIMB DISCOMFORT [None]
  - LUNG DISORDER [None]
  - MYOCARDIAL INFARCTION [None]
  - NERVOUS SYSTEM DISORDER [None]
  - NERVOUSNESS [None]
  - PRESCRIBED OVERDOSE [None]
